FAERS Safety Report 10240596 (Version 1)
Quarter: 2014Q2

REPORT INFORMATION
  Report Type: Spontaneous
  Country: ZA (occurrence: ZA)
  Receive Date: 20140617
  Receipt Date: 20140617
  Transmission Date: 20141212
  Serious: Yes (Death)
  Sender: FDA-Public Use
  Company Number: ZA-009507513-1406ZAF006915

PATIENT
  Sex: Female

DRUGS (1)
  1. CANCIDAS 50MG [Suspect]
     Indication: FUNGAL INFECTION
     Dosage: UNK

REACTIONS (1)
  - Death [Fatal]
